FAERS Safety Report 5110725-0 (Version None)
Quarter: 2006Q3

REPORT INFORMATION
  Report Type: 
  Country: None (occurrence: None)
  Receive Date: 20060919
  Receipt Date: 20060915
  Transmission Date: 20061208
  Serious: Yes (Hospitalization, Other)
  Sender: FDA-Public Use
  Company Number: 30657

PATIENT
  Age: 77 Year
  Sex: Female

DRUGS (1)
  1. LEUCOVORIN CALCIUM [Suspect]
     Indication: ADENOCARCINOMA
     Dosage: 400MG/M2, IV
     Route: 042
     Dates: start: 20060724

REACTIONS (9)
  - CATHETER RELATED INFECTION [None]
  - COUGH [None]
  - HAEMOPTYSIS [None]
  - PLATELET COUNT DECREASED [None]
  - PNEUMOTHORAX [None]
  - PSEUDOMONAL SEPSIS [None]
  - PULMONARY CAVITATION [None]
  - SEPSIS [None]
  - TRANSIENT ISCHAEMIC ATTACK [None]
